FAERS Safety Report 6073924-X (Version None)
Quarter: 2009Q1

REPORT INFORMATION
  Report Type: 
  Country: None (occurrence: None)
  Receive Date: 20090211
  Receipt Date: 20090205
  Transmission Date: 20090719
  Serious: Yes (Other)
  Sender: FDA-Public Use
  Company Number: FR-MERCK-0804FRA00058

PATIENT
  Age: 31 Year
  Sex: Female

DRUGS (5)
  1. SINGULAIR [Suspect]
     Indication: ASTHMA
     Route: 048
     Dates: start: 20070101, end: 20080407
  2. SINGULAIR [Suspect]
     Route: 048
     Dates: start: 20080501
  3. CETIRIZINE HYDROCHLORIDE [Concomitant]
     Route: 048
  4. TRIAMCINOLONE ACETONIDE [Concomitant]
     Route: 061
  5. ALBUTEROL SULFATE [Concomitant]

REACTIONS (2)
  - ABORTION SPONTANEOUS [None]
  - DRUG EXPOSURE DURING PREGNANCY [None]
